FAERS Safety Report 7256678-0 (Version None)
Quarter: 2011Q1

REPORT INFORMATION
  Report Type: 
  Country: None (occurrence: None)
  Receive Date: 20110129
  Receipt Date: 20100809
  Transmission Date: 20110831
  Serious: Yes (Other)
  Sender: FDA-Public Use
  Company Number: US-ABBOTT-10P-163-0663101-00

PATIENT
  Age: 35 Year
  Sex: Male

DRUGS (5)
  1. NEXIUM [Concomitant]
     Indication: GASTROOESOPHAGEAL REFLUX DISEASE
  2. HUMIRA [Suspect]
     Indication: CROHN'S DISEASE
     Dates: start: 20100501, end: 20100719
  3. PREDNISONE [Concomitant]
     Indication: CROHN'S DISEASE
  4. LIALDA [Concomitant]
     Indication: CROHN'S DISEASE
  5. MULTIPLE VITAMINS [Concomitant]
     Indication: VITAMIN SUPPLEMENTATION

REACTIONS (2)
  - MUSCLE SPASMS [None]
  - BONE ABSCESS [None]
